FAERS Safety Report 5698046-9 (Version None)
Quarter: 2008Q2

REPORT INFORMATION
  Report Type: 
  Country: None (occurrence: None)
  Receive Date: 20080404
  Receipt Date: 20080404
  Transmission Date: 20081010
  Serious: Yes (Other)
  Sender: FDA-Public Use
  Company Number: None

PATIENT
  Sex: Male
  Weight: 88 kg

DRUGS (2)
  1. VANCOMYCIN [Suspect]
     Dosage: IV
     Route: 042
  2. CIPROFLOXACIN [Suspect]
     Dosage: PO
     Route: 048

REACTIONS (3)
  - PRURITUS [None]
  - RASH ERYTHEMATOUS [None]
  - SWELLING FACE [None]
